FAERS Safety Report 7686129-3 (Version None)
Quarter: 2011Q3

REPORT INFORMATION
  Report Type: 
  Country: None (occurrence: None)
  Receive Date: 20110816
  Receipt Date: 20110808
  Transmission Date: 20111222
  Serious: Yes (Hospitalization, Other)
  Sender: FDA-Public Use
  Company Number: PHHY2011US03368

PATIENT
  Sex: Male

DRUGS (14)
  1. DAILY-VITE [Concomitant]
  2. DOKTACILLIN [Concomitant]
     Dosage: 100 MG, CAPSULE
     Route: 048
  3. PRILOSEC [Concomitant]
     Route: 048
  4. VANCOMYCIN HCL [Suspect]
     Indication: RESPIRATORY DISTRESS
     Dates: start: 20101001
  5. FENTAC [Concomitant]
     Dosage: 50 MCG, PATCH PER 72 HOURS
  6. EXJADE [Suspect]
     Dosage: 1000 MG, QD
     Route: 048
     Dates: start: 20101001
  7. FOLIC ACID [Concomitant]
     Dosage: 1 DF, DAILY
     Route: 048
  8. MUCINEX [Concomitant]
     Dosage: 600 MG, UNK
  9. AVELOX [Concomitant]
     Dosage: 400 MG, DAILY
     Route: 048
  10. OXYCONTIN [Concomitant]
     Dosage: 20 MG, UNK
  11. DIGOXIN [Concomitant]
     Dosage: 0.125 MG, DAILY
     Route: 048
  12. DOXYCYCLINE [Concomitant]
     Dosage: 100 MG, BID
  13. LORATADINE [Concomitant]
     Dosage: 10 MG, UNK
  14. NASONEX [Concomitant]

REACTIONS (2)
  - PULMONARY AIR LEAKAGE [None]
  - RENAL FAILURE [None]
